FAERS Safety Report 14264317 (Version 1)
Quarter: 2017Q4

REPORT INFORMATION
  Report Type: Spontaneous
  Country: GB (occurrence: GB)
  Receive Date: 20171208
  Receipt Date: 20171208
  Transmission Date: 20180321
  Serious: Yes (Other)
  Sender: FDA-Public Use
  Company Number: GB-JAZZ-2017-GB-014029

PATIENT
  Age: 18 Year
  Sex: Female

DRUGS (2)
  1. XYREM [Suspect]
     Active Substance: SODIUM OXYBATE
     Dosage: 3.25 G, BID
     Route: 048
  2. XYREM [Suspect]
     Active Substance: SODIUM OXYBATE
     Indication: PRODUCT USED FOR UNKNOWN INDICATION
     Dosage: 3.5 G, BID
     Route: 048

REACTIONS (9)
  - Fall [Recovered/Resolved]
  - Tongue injury [Unknown]
  - Head injury [Unknown]
  - Sleep-related eating disorder [Not Recovered/Not Resolved]
  - Treatment noncompliance [Unknown]
  - Product use issue [Unknown]
  - Abnormal sleep-related event [Unknown]
  - Upper limb fracture [Unknown]
  - Eye contusion [Unknown]

NARRATIVE: CASE EVENT DATE: 20161029
